FAERS Safety Report 4758855-7 (Version None)
Quarter: 2005Q3

REPORT INFORMATION
  Report Type: 
  Country: None (occurrence: None)
  Receive Date: 20050826
  Receipt Date: 20050820
  Transmission Date: 20060218
  Serious: Yes (Other)
  Sender: FDA-Public Use
  Company Number: 2005118137

PATIENT
  Age: 23 Year
  Sex: Male
  Weight: 99.7913 kg

DRUGS (6)
  1. GEODON [Suspect]
     Indication: DEPRESSION
     Dosage: 80 MG (40 MG, 2 IN 1 D)
     Dates: start: 20050806, end: 20050819
  2. BENADRYL [Suspect]
     Indication: CONVULSION
     Dosage: 50 MG (50 MG, ONCE) INTRAVENOUS
     Route: 042
     Dates: start: 20050819, end: 20050819
  3. PAXIL [Concomitant]
  4. DALMANE [Concomitant]
  5. ATIVAN [Concomitant]
  6. METHADONE HCL [Concomitant]

REACTIONS (5)
  - CONVULSIONS LOCAL [None]
  - FATIGUE [None]
  - FEELING COLD [None]
  - INSOMNIA [None]
  - MUSCULAR WEAKNESS [None]
